FAERS Safety Report 13486124 (Version 1)
Quarter: 2017Q2

REPORT INFORMATION
  Report Type: Spontaneous
  Country: US (occurrence: US)
  Receive Date: 20170426
  Receipt Date: 20170426
  Transmission Date: 20170830
  Serious: Yes (Hospitalization)
  Sender: FDA-Public Use
  Company Number: None

PATIENT
  Age: 6 Year
  Sex: Male
  Weight: 36 kg

DRUGS (1)
  1. TAMIFLU [Suspect]
     Active Substance: OSELTAMIVIR PHOSPHATE
     Indication: INFLUENZA
     Dates: start: 20170222, end: 20170227

REACTIONS (4)
  - Platelet count decreased [None]
  - Depressed level of consciousness [None]
  - Rhabdomyolysis [None]
  - Bradycardia [None]

NARRATIVE: CASE EVENT DATE: 20170227
